FAERS Safety Report 8853114 (Version 1)
Quarter: 2012Q4

REPORT INFORMATION
  Report Type: 
  Country: JP (occurrence: JP)
  Receive Date: 20121022
  Receipt Date: 20121022
  Transmission Date: 20130627
  Serious: Yes (Hospitalization)
  Sender: FDA-Public Use
  Company Number: JP-WATSON-2012-17849

PATIENT
  Age: 60 Year
  Sex: Female

DRUGS (2)
  1. PREGABALIN [Suspect]
     Indication: SPINAL PAIN
     Dosage: 450 mg, daily
     Route: 065
  2. PREGABALIN [Suspect]
     Dosage: 300 mg, daily
     Route: 065

REACTIONS (2)
  - Hypoglycaemia [Recovered/Resolved]
  - Loss of consciousness [None]
